FAERS Safety Report 22292995 (Version 1)
Quarter: 2023Q2

REPORT INFORMATION
  Report Type: Spontaneous
  Country: US (occurrence: US)
  Receive Date: 20230508
  Receipt Date: 20230508
  Transmission Date: 20230722
  Serious: No
  Sender: FDA-Public Use
  Company Number: US-BRISTOL-MYERS SQUIBB COMPANY-2023-064170

PATIENT
  Age: 77 Year
  Sex: Female
  Weight: 68.04 kg

DRUGS (1)
  1. REVLIMID [Suspect]
     Active Substance: LENALIDOMIDE
     Indication: Plasma cell myeloma
     Dosage: FREQ: 14D OF 21D
     Route: 048
     Dates: start: 20230101

REACTIONS (3)
  - Ocular discomfort [Not Recovered/Not Resolved]
  - Dysgeusia [Unknown]
  - Off label use [Unknown]
